FAERS Safety Report 4748499-5 (Version None)
Quarter: 2005Q3

REPORT INFORMATION
  Report Type: 
  Country: None (occurrence: None)
  Receive Date: 20050817
  Receipt Date: 20050804
  Transmission Date: 20060218
  Serious: Yes (Other)
  Sender: FDA-Public Use
  Company Number: 2005103268

PATIENT
  Age: 46 Year
  Sex: Male
  Weight: 84.369 kg

DRUGS (3)
  1. DETROL LA [Suspect]
     Indication: ENURESIS
     Dosage: 4 MG (4 MG, 1 IN 1 D), ORAL
     Route: 048
  2. DETROL LA [Suspect]
     Indication: HYPERTONIC BLADDER
     Dosage: 4 MG (4 MG, 1 IN 1 D), ORAL
     Route: 048
  3. ALL OTHER THERAPEUTIC PRODUCTS (ALL OTHER THERAPEUTIC  PRODUCTS) [Concomitant]

REACTIONS (3)
  - CONDITION AGGRAVATED [None]
  - DRUG INEFFECTIVE [None]
  - ROTATOR CUFF SYNDROME [None]
